FAERS Safety Report 24370776 (Version 1)
Quarter: 2024Q3

REPORT INFORMATION
  Report Type: Spontaneous
  Country: US (occurrence: US)
  Receive Date: 20240927
  Receipt Date: 20240927
  Transmission Date: 20241017
  Serious: No
  Sender: RECKITT BENCKISER
  Company Number: US-INDIVIOR US-INDV-143777-2024

PATIENT
  Sex: Female

DRUGS (2)
  1. PERSERIS [Suspect]
     Active Substance: RISPERIDONE
     Indication: Product used for unknown indication
     Dosage: UNK, ONE TIME DOSE
     Route: 065
  2. PERSERIS [Suspect]
     Active Substance: RISPERIDONE

REACTIONS (4)
  - Injection site pain [Unknown]
  - Incorrect dose administered [Recovered/Resolved]
  - Multiple use of single-use product [Recovered/Resolved]
  - Wrong technique in product usage process [Recovered/Resolved]
